FAERS Safety Report 9402985 (Version 2)
Quarter: 2013Q3

REPORT INFORMATION
  Report Type: Spontaneous
  Country: US (occurrence: US)
  Receive Date: 20130716
  Receipt Date: 20130813
  Transmission Date: 20140515
  Serious: No
  Sender: FDA-Public Use
  Company Number: US-TEVA-418939USA

PATIENT
  Age: 40 Year
  Sex: Female

DRUGS (2)
  1. QNASL [Suspect]
     Indication: RHINITIS ALLERGIC
     Route: 055
  2. UNSPECIFIED ASTHMA MEDICATION [Concomitant]

REACTIONS (1)
  - Nasal discomfort [Recovered/Resolved]
